FAERS Safety Report 7483571-0 (Version None)
Quarter: 2011Q2

REPORT INFORMATION
  Report Type: 
  Country: None (occurrence: None)
  Receive Date: 20110517
  Receipt Date: 20110511
  Transmission Date: 20111010
  Serious: Yes (Other)
  Sender: FDA-Public Use
  Company Number: US-PFIZER INC-2011101497

PATIENT
  Sex: Male
  Weight: 70.295 kg

DRUGS (12)
  1. PROSCAR [Concomitant]
     Indication: DISCOMFORT
  2. NEXIUM [Concomitant]
     Indication: GASTROOESOPHAGEAL REFLUX DISEASE
     Dosage: UNK
  3. SIMVASTATIN [Concomitant]
     Indication: BLOOD CHOLESTEROL INCREASED
     Dosage: 40 MG, UNK
  4. AMLODIPINE [Concomitant]
     Indication: HYPERTENSION
     Dosage: 5 MG, UNK
  5. TRIAMTERENE AND HYDROCHLOROTHIAZIDE [Concomitant]
     Indication: BLOOD PRESSURE INCREASED
     Dosage: 37.5MG/25MG TABLET, UNK
  6. PLAVIX [Concomitant]
     Indication: ANTICOAGULANT THERAPY
     Dosage: UNK
  7. QUINAPRIL [Concomitant]
     Indication: HYPERTENSION
     Dosage: 20 MG, UNK
  8. TOVIAZ [Suspect]
     Indication: HYPERTONIC BLADDER
     Dosage: 4 MG, DAILY
     Route: 048
     Dates: start: 20110501
  9. SILODOSIN [Concomitant]
     Indication: DISCOMFORT
  10. PROSCAR [Concomitant]
     Indication: DYSURIA
     Dosage: 5 MG, UNK
  11. SILODOSIN [Concomitant]
     Indication: DYSURIA
     Dosage: 8 MG, UNK
  12. METOPROLOL [Concomitant]
     Indication: HYPERTENSION
     Dosage: UNK

REACTIONS (4)
  - DISCOMFORT [None]
  - POLLAKIURIA [None]
  - URINARY RETENTION [None]
  - DYSURIA [None]
